FAERS Safety Report 5652118-3 (Version None)
Quarter: 2008Q1

REPORT INFORMATION
  Report Type: 
  Country: None (occurrence: None)
  Receive Date: 20080304
  Receipt Date: 20080225
  Transmission Date: 20080703
  Serious: Yes (Death, Hospitalization)
  Sender: FDA-Public Use
  Company Number: 2007002543

PATIENT
  Age: 76 Year
  Sex: Female

DRUGS (10)
  1. ERLOTINIB (ERLOTINIB HCL) (TABLET) (ERLOTINIB HCL) [Suspect]
     Dosage: 100 MG, QD, ORAL
     Route: 048
     Dates: start: 20071015
  2. GEMCITABINE [Suspect]
     Indication: PANCREATIC CARCINOMA METASTATIC
     Dosage: 1000 MG/KG, QW, INTRAVENOUS
     Route: 042
     Dates: start: 20071015
  3. LOPERAMIDE [Concomitant]
  4. EPOETIN BETA (EPOETIN BETA) [Concomitant]
  5. NEUPOGEN [Concomitant]
  6. BUPERORFINE HYDROCHLORIDE [Concomitant]
  7. METAMIZOL MAGNESIUM [Concomitant]
  8. FENTANILO [Concomitant]
  9. ENOXAPARIN SODIUM [Concomitant]
  10. LORAZEPAM [Concomitant]

REACTIONS (2)
  - ANAEMIA [None]
  - GASTROINTESTINAL TOXICITY [None]
